FAERS Safety Report 5834850-1 (Version None)
Quarter: 2008Q3

REPORT INFORMATION
  Report Type: 
  Country: None (occurrence: None)
  Receive Date: 20080728
  Receipt Date: 20080519
  Transmission Date: 20090109
  Serious: Yes (Other)
  Sender: FDA-Public Use
  Company Number: 2008US000841

PATIENT
  Age: 58 Year
  Sex: Female

DRUGS (1)
  1. VAPRISOL [Suspect]
     Indication: DRUG USE FOR UNKNOWN INDICATION
     Dosage: PARENTERAL
     Route: 051
     Dates: start: 20080301, end: 20080301

REACTIONS (1)
  - ATRIAL FIBRILLATION [None]
